FAERS Safety Report 19762552 (Version 2)
Quarter: 2023Q1

REPORT INFORMATION
  Report Type: Other
  Country: US (occurrence: US)
  Receive Date: 20210830
  Receipt Date: 20230222
  Transmission Date: 20230418
  Serious: Yes (Other)
  Sender: FDA-Public Use
  Company Number: US-APOTEX-2021AP041097

PATIENT
  Age: 57 Year
  Sex: Male

DRUGS (5)
  1. RANITIDINE HYDROCHLORIDE [Suspect]
     Active Substance: RANITIDINE HYDROCHLORIDE
     Indication: Dyspepsia
     Dosage: OTHER (WHENEVER I HAD INDIGESTION, 2-3 TIMES/WEEK IF NOT MORE.)
     Route: 065
     Dates: start: 199001, end: 202004
  2. RANITIDINE HYDROCHLORIDE [Suspect]
     Active Substance: RANITIDINE HYDROCHLORIDE
     Indication: Abdominal discomfort
  3. RANITIDINE [Suspect]
     Active Substance: RANITIDINE
     Indication: Product used for unknown indication
     Dosage: UNK
     Route: 065
     Dates: start: 199001, end: 202004
  4. ZANTAC [Suspect]
     Active Substance: RANITIDINE HYDROCHLORIDE
     Indication: Dyspepsia
     Dosage: OTHER (WHENEVER I HAD INDIGESTION, 2-3 TIMES/WEEK IF NOT MORE.)
     Route: 065
     Dates: start: 199001, end: 202004
  5. ZANTAC [Suspect]
     Active Substance: RANITIDINE HYDROCHLORIDE
     Indication: Abdominal discomfort

REACTIONS (3)
  - Colorectal cancer [Not Recovered/Not Resolved]
  - Hepatic cancer [Not Recovered/Not Resolved]
  - Gastrointestinal carcinoma [Unknown]

NARRATIVE: CASE EVENT DATE: 20200501
